FAERS Safety Report 6867835-7 (Version None)
Quarter: 2010Q3

REPORT INFORMATION
  Report Type: 
  Country: None (occurrence: None)
  Receive Date: 20100722
  Receipt Date: 20100722
  Transmission Date: 20110219
  Serious: Yes (Other)
  Sender: FDA-Public Use
  Company Number: None

PATIENT

DRUGS (1)
  1. ADDERALL 10 [Suspect]
     Indication: ATTENTION DEFICIT/HYPERACTIVITY DISORDER
     Dosage: 10, 20, 30 MG 2-3 TIMES A DAY PO
     Route: 048
     Dates: start: 20040202, end: 20090704

REACTIONS (6)
  - DEPRESSION [None]
  - DIZZINESS [None]
  - HEADACHE [None]
  - LETHARGY [None]
  - OVERDOSE [None]
  - PRODUCT QUALITY ISSUE [None]
